FAERS Safety Report 9423792 (Version 2)
Quarter: 2013Q3

REPORT INFORMATION
  Report Type: Report from Study
  Country: US (occurrence: US)
  Receive Date: 20130729
  Receipt Date: 20130823
  Transmission Date: 20140515
  Serious: Yes (Death)
  Sender: FDA-Public Use
  Company Number: US-ROCHE-1254048

PATIENT
  Age: 33 Year
  Sex: Female
  Weight: 175.24 kg

DRUGS (1)
  1. AVASTIN [Suspect]
     Indication: PRODUCT USED FOR UNKNOWN INDICATION
     Dosage: RECEIVED 2 DOSES PRIOR TO 30/NOV/2012, LAST DOSE: 03/JUL/2012
     Route: 065
     Dates: end: 20121130

REACTIONS (1)
  - Malignant glioma [Fatal]
